FAERS Safety Report 4778882-3 (Version None)
Quarter: 2005Q3

REPORT INFORMATION
  Report Type: 
  Country: None (occurrence: None)
  Receive Date: 20050922
  Receipt Date: 20050913
  Transmission Date: 20060218
  Serious: Yes (Other)
  Sender: FDA-Public Use
  Company Number: EM2005-0432

PATIENT
  Age: 58 Year
  Sex: Male

DRUGS (15)
  1. PROLEUKIN [Suspect]
     Indication: MALIGNANT MELANOMA
     Dosage: 96 MIU, INTRAVENOUS
     Route: 042
     Dates: start: 20050609, end: 20050613
  2. CISPLATIN [Suspect]
     Indication: MALIGNANT MELANOMA
     Dosage: 42 MG INTRAVENOUS
     Route: 042
     Dates: start: 20050609, end: 20050613
  3. TEMODAR [Suspect]
     Indication: MALIGNANT MELANOMA
     Dosage: 315 MG QD ORAL
     Route: 048
  4. VINBLASTINE SULFATE [Suspect]
     Indication: MALIGNANT MELANOMA
     Dosage: 3.2 MG, QD, IV PUSH
     Route: 042
     Dates: start: 20050609, end: 20050613
  5. INTRON A [Suspect]
     Indication: MALIGNANT MELANOMA
     Dosage: 11 MIU, QD, SUBCUTANEOUS
     Route: 058
     Dates: start: 20050609, end: 20050613
  6. ATIVAN [Concomitant]
  7. COMPAZINE [Concomitant]
  8. IMODIUM [Concomitant]
  9. ZYRTEC [Concomitant]
  10. TYLENOL (PARACETAMOL) [Concomitant]
  11. K-DUR 10 [Concomitant]
  12. OXYCONTIN [Concomitant]
  13. VICODIN [Concomitant]
  14. NEXIUM [Concomitant]
  15. COUMADIN [Concomitant]

REACTIONS (2)
  - HYPONATRAEMIA [None]
  - NEUTROPENIA [None]
